FAERS Safety Report 14352116 (Version 3)
Quarter: 2018Q4

REPORT INFORMATION
  Report Type: Spontaneous
  Country: US (occurrence: US)
  Receive Date: 20180104
  Receipt Date: 20181017
  Transmission Date: 20190204
  Serious: No
  Sender: FDA-Public Use
  Company Number: US-PFIZER INC-2017551461

PATIENT
  Age: 62 Year
  Sex: Female

DRUGS (2)
  1. DULOXETIN HCL DR [Concomitant]
     Dosage: 30 MG, 1X/DAY, (30 MG/NIGHT)
  2. XELJANZ XR [Suspect]
     Active Substance: TOFACITINIB CITRATE
     Indication: RHEUMATOID ARTHRITIS
     Dosage: 11 MG, DAILY
     Route: 048
     Dates: start: 201503, end: 20180604

REACTIONS (4)
  - Drug ineffective [Unknown]
  - Vomiting [Unknown]
  - Discomfort [Unknown]
  - Decreased appetite [Unknown]

NARRATIVE: CASE EVENT DATE: 201806
